FAERS Safety Report 5895833-9 (Version None)
Quarter: 2008Q3

REPORT INFORMATION
  Report Type: 
  Country: None (occurrence: None)
  Receive Date: 20080924
  Receipt Date: 20080916
  Transmission Date: 20090109
  Serious: Yes (Hospitalization, Other)
  Sender: FDA-Public Use
  Company Number: US-JNJFOC-20080903820

PATIENT
  Sex: Male
  Weight: 102.06 kg

DRUGS (1)
  1. FENTANYL TRANSDERMAL SYSTEM [Suspect]
     Indication: PAIN
     Dosage: 100 MCG/HR TWICE A DAY AND 25 MCG ONCE A DAY
     Route: 062

REACTIONS (2)
  - FALL [None]
  - INCORRECT DRUG ADMINISTRATION DURATION [None]
